FAERS Safety Report 24835882 (Version 1)
Quarter: 2025Q1

REPORT INFORMATION
  Report Type: Spontaneous
  Country: US (occurrence: US)
  Receive Date: 20250113
  Receipt Date: 20250113
  Transmission Date: 20250409
  Serious: No
  Sender: TAKEDA
  Company Number: US-TAKEDA-2025TUS001340

PATIENT
  Sex: Female
  Weight: 69 kg

DRUGS (5)
  1. GAMMAGARD LIQUID [Suspect]
     Active Substance: HUMAN IMMUNOGLOBULIN G
     Indication: Chronic inflammatory demyelinating polyradiculoneuropathy
     Dosage: 1 MILLIGRAM/KILOGRAM, Q3WEEKS
     Dates: start: 2024
  2. LEVOTHYROXINE [Concomitant]
     Active Substance: LEVOTHYROXINE
  3. LYRICA [Concomitant]
     Active Substance: PREGABALIN
  4. LORAZEPAM [Concomitant]
     Active Substance: LORAZEPAM
  5. NALTREXONE [Concomitant]
     Active Substance: NALTREXONE

REACTIONS (3)
  - Blood test abnormal [Unknown]
  - Burning sensation [Unknown]
  - Pain [Unknown]
